FAERS Safety Report 7617971-2 (Version None)
Quarter: 2011Q3

REPORT INFORMATION
  Report Type: 
  Country: None (occurrence: None)
  Receive Date: 20110718
  Receipt Date: 20110706
  Transmission Date: 20111222
  Serious: Yes (Other)
  Sender: FDA-Public Use
  Company Number: PHHY2011NL20711

PATIENT
  Age: 19 Year
  Sex: Female

DRUGS (2)
  1. TASIGNA [Suspect]
     Indication: CHRONIC MYELOID LEUKAEMIA
     Dosage: 300 MG, BID (2 DD, 300MG)
  2. TASIGNA [Suspect]
     Dosage: 150 MG, BID (2 DD, 150MG )
     Route: 048

REACTIONS (1)
  - RAYNAUD'S PHENOMENON [None]
